FAERS Safety Report 11881994 (Version 1)
Quarter: 2015Q4

REPORT INFORMATION
  Report Type: Spontaneous
  Country: MX (occurrence: MX)
  Receive Date: 20151231
  Receipt Date: 20151231
  Transmission Date: 20160305
  Serious: Yes (Other)
  Sender: FDA-Public Use
  Company Number: MX-SA-2015SA183886

PATIENT
  Sex: Female

DRUGS (1)
  1. FABRAZYME [Suspect]
     Active Substance: AGALSIDASE BETA
     Indication: FABRY^S DISEASE
     Route: 042
     Dates: start: 2013, end: 2015

REACTIONS (2)
  - Exposure during pregnancy [Unknown]
  - Abortion threatened [Unknown]

NARRATIVE: CASE EVENT DATE: 20151207
